FAERS Safety Report 4818583-6 (Version None)
Quarter: 2005Q4

REPORT INFORMATION
  Report Type: 
  Country: None (occurrence: None)
  Receive Date: 20051027
  Receipt Date: 20051017
  Transmission Date: 20060501
  Serious: Yes (Death)
  Sender: FDA-Public Use
  Company Number: PERC20050043

PATIENT
  Age: 42 Year
  Sex: Male
  Weight: 106.5953 kg

DRUGS (3)
  1. PERCOCET [Suspect]
     Indication: BACK PAIN
     Dates: end: 20040901
  2. ACETAMINOPHEN AND OXYCODONE HCL [Suspect]
     Indication: BACK PAIN
     Dates: end: 20040901
  3. XANAX [Concomitant]

REACTIONS (10)
  - ACCIDENTAL DEATH [None]
  - ARTERIOSCLEROSIS [None]
  - CONJUNCTIVAL HYPERAEMIA [None]
  - CONTUSION [None]
  - CORONARY ARTERY DISEASE [None]
  - DRUG TOXICITY [None]
  - HEPATIC STEATOSIS [None]
  - MENINGEAL DISORDER [None]
  - PULMONARY CONGESTION [None]
  - PULMONARY OEDEMA [None]
